FAERS Safety Report 17307708 (Version 1)
Quarter: 2020Q1

REPORT INFORMATION
  Report Type: Spontaneous
  Country: US (occurrence: US)
  Receive Date: 20200122
  Receipt Date: 20200122
  Transmission Date: 20200409
  Serious: Yes (Life-Threatening, Hospitalization)
  Sender: FDA-Public Use
  Company Number: None

PATIENT
  Age: 72 Year
  Sex: Male
  Weight: 78.6 kg

DRUGS (4)
  1. AMIODARONE 200 MG TABLET [Concomitant]
     Active Substance: AMIODARONE
     Dates: end: 20200108
  2. ASPIRIN 81 MG EC TABLET [Concomitant]
     Dates: end: 20200108
  3. WARFARIN 3 MG TABLET [Concomitant]
     Dates: end: 20200108
  4. VANCOMYCIN [Suspect]
     Active Substance: VANCOMYCIN
     Indication: ENDOCARDITIS
     Route: 041
     Dates: start: 20191227, end: 20200108

REACTIONS (2)
  - Stevens-Johnson syndrome [None]
  - Toxic epidermal necrolysis [None]

NARRATIVE: CASE EVENT DATE: 20200108
